FAERS Safety Report 5652570-3 (Version None)
Quarter: 2008Q1

REPORT INFORMATION
  Report Type: 
  Country: None (occurrence: None)
  Receive Date: 20080131
  Receipt Date: 20071023
  Transmission Date: 20080703
  Serious: No
  Sender: FDA-Public Use
  Company Number: US200710005906

PATIENT
  Age: 59 Year
  Sex: Female
  Weight: 62.6 kg

DRUGS (8)
  1. BYETTA [Suspect]
     Indication: TYPE 2 DIABETES MELLITUS
     Dosage: 5 UG, 2/D, SUBCUTANEOUS ; 5 UG, DAILY (1/D), SUBCUTANEOUS
     Route: 058
     Dates: start: 20071010, end: 20071018
  2. BYETTA [Suspect]
     Indication: TYPE 2 DIABETES MELLITUS
     Dosage: 5 UG, 2/D, SUBCUTANEOUS ; 5 UG, DAILY (1/D), SUBCUTANEOUS
     Route: 058
     Dates: start: 20071019
  3. GLUCOVANCE [Concomitant]
  4. ZIAC [Concomitant]
  5. NORVASC [Concomitant]
  6. POTASSIUM CHLORIDE [Concomitant]
  7. HORMONES AND RELATED AGENTS [Concomitant]
  8. ZOCOR [Concomitant]

REACTIONS (3)
  - BLOOD URINE PRESENT [None]
  - CONSTIPATION [None]
  - NAUSEA [None]
